FAERS Safety Report 8444329-9 (Version None)
Quarter: 2012Q2

REPORT INFORMATION
  Report Type: 
  Country: None (occurrence: None)
  Receive Date: 20120618
  Receipt Date: 20120613
  Transmission Date: 20120825
  Serious: Yes (Life-Threatening, Hospitalization)
  Sender: FDA-Public Use
  Company Number: DE-AMGEN-DEUCT2012029624

PATIENT
  Age: 62 Year
  Sex: Female

DRUGS (7)
  1. RAMIPRIL [Concomitant]
     Indication: HYPERTENSION
     Dosage: 5 MG, UNK
     Dates: start: 20120330
  2. BETAMETASONA [Concomitant]
     Indication: SKIN TOXICITY
     Dosage: UNK
     Dates: start: 20120413
  3. CAPECITABINE [Concomitant]
     Indication: GASTROOESOPHAGEAL CANCER
     Dosage: 625 MG/M2, UNK
     Route: 048
     Dates: start: 20120330
  4. PANITUMUMAB [Suspect]
     Indication: GASTROOESOPHAGEAL CANCER
     Dosage: 9 MG/KG, UNK
     Route: 042
     Dates: start: 20120330
  5. EPIRUBICIN [Concomitant]
     Indication: GASTROOESOPHAGEAL CANCER
     Dosage: 50 MG/M2, UNK
     Route: 042
     Dates: start: 20120330
  6. OMEPRAZOLE [Concomitant]
     Indication: PROPHYLAXIS AGAINST GASTROINTESTINAL ULCER
     Dosage: UNK
     Dates: start: 20120322
  7. CISPLATIN [Concomitant]
     Indication: GASTROOESOPHAGEAL CANCER
     Dosage: 60 MG/M2, UNK
     Route: 042
     Dates: start: 20120330

REACTIONS (2)
  - NAUSEA [None]
  - DEEP VEIN THROMBOSIS [None]
